FAERS Safety Report 5122577-3 (Version None)
Quarter: 2006Q4

REPORT INFORMATION
  Report Type: 
  Country: None (occurrence: None)
  Receive Date: 20061004
  Receipt Date: 20061004
  Transmission Date: 20070319
  Serious: Yes (Other)
  Sender: FDA-Public Use
  Company Number: None

PATIENT
  Age: 34 Year
  Sex: Female
  Weight: 97.5234 kg

DRUGS (2)
  1. ABILIFY [Suspect]
     Indication: SCHIZOPHRENIA
     Dosage: 30 MG THEN 20 MG DAILY ORAL
     Route: 048
     Dates: start: 20060901
  2. THORAZINE [Suspect]
     Dosage: X1 DOSE INJECTION

REACTIONS (4)
  - DYSPNOEA [None]
  - HYPOAESTHESIA [None]
  - NAIL DISCOLOURATION [None]
  - PERIPHERAL COLDNESS [None]
